FAERS Safety Report 16463708 (Version 1)
Quarter: 2019Q2

REPORT INFORMATION
  Report Type: Spontaneous
  Country: DE (occurrence: DE)
  Receive Date: 20190621
  Receipt Date: 20190621
  Transmission Date: 20190711
  Serious: Yes (Other)
  Sender: FDA-Public Use
  Company Number: DE-SA-2019SA151520

PATIENT
  Age: 16 Year
  Sex: Male
  Weight: 65.3 kg

DRUGS (2)
  1. FABRAZYME [Suspect]
     Active Substance: AGALSIDASE BETA
     Indication: FABRY^S DISEASE
     Dosage: 1 DF, UNK
     Route: 041
     Dates: start: 20190424
  2. FABRAZYME [Suspect]
     Active Substance: AGALSIDASE BETA
     Dosage: 4 DF, UNK
     Route: 041
     Dates: start: 20190424

REACTIONS (4)
  - Rash pustular [Recovered/Resolved]
  - Erythema [Recovered/Resolved]
  - Feeling hot [Recovered/Resolved]
  - Pruritus [Recovered/Resolved]

NARRATIVE: CASE EVENT DATE: 20190531
